FAERS Safety Report 11626935 (Version 1)
Quarter: 2015Q4

REPORT INFORMATION
  Report Type: Spontaneous
  Country: IT (occurrence: IT)
  Receive Date: 20151013
  Receipt Date: 20151013
  Transmission Date: 20160304
  Serious: Yes (Life-Threatening, Other)
  Sender: FDA-Public Use
  Company Number: IT-ROXANE LABORATORIES, INC.-2015-RO-01653RO

PATIENT
  Age: 59 Year
  Sex: Female

DRUGS (1)
  1. MONTELUKAST SODIUM. [Suspect]
     Active Substance: MONTELUKAST SODIUM
     Indication: ASTHMA
     Dosage: 10 MG
     Route: 065

REACTIONS (4)
  - Allergic granulomatous angiitis [Unknown]
  - Coma [Unknown]
  - Neuropathy peripheral [Unknown]
  - Subarachnoid haemorrhage [Unknown]
